FAERS Safety Report 8028346-9 (Version None)
Quarter: 2012Q1

REPORT INFORMATION
  Report Type: 
  Country: None (occurrence: None)
  Receive Date: 20120106
  Receipt Date: 20120104
  Transmission Date: 20120608
  Serious: Yes (Death, Other)
  Sender: FDA-Public Use
  Company Number: PHHY2012GB000734

PATIENT
  Age: 47 Year
  Sex: Male

DRUGS (5)
  1. INFUMORPH [Suspect]
     Dosage: 1 DF, TID
     Dates: start: 20110426
  2. TRAMADOL HCL [Suspect]
     Dosage: 2 DF, QID (1-2, FORU TIMES A DAY)
     Dates: start: 20110426
  3. OPIATES [Suspect]
  4. TRAMADOL HCL [Suspect]
     Dosage: 2 DF, QID (1-2, FORU TIMES A DAY)
  5. INFUMORPH [Suspect]
     Indication: BACK PAIN
     Dosage: 1 DF, TID

REACTIONS (4)
  - TOXICITY TO VARIOUS AGENTS [None]
  - DRUG LEVEL INCREASED [None]
  - BRONCHOPNEUMONIA [None]
  - ACCIDENTAL OVERDOSE [None]
